FAERS Safety Report 6972645-6 (Version None)
Quarter: 2010Q3

REPORT INFORMATION
  Report Type: 
  Country: None (occurrence: None)
  Receive Date: 20100907
  Receipt Date: 20100825
  Transmission Date: 20110219
  Serious: Yes (Hospitalization, Other)
  Sender: FDA-Public Use
  Company Number: 2010AC000440

PATIENT
  Age: 82 Year
  Sex: Male

DRUGS (14)
  1. DIGOXIN [Suspect]
     Dosage: ; PO
     Route: 048
     Dates: start: 20060301, end: 20080601
  2. DIGOXIN [Suspect]
     Indication: CARDIAC FAILURE CONGESTIVE
     Dosage: 0.25 MG; QD; PO
     Route: 048
     Dates: start: 20030203, end: 20030828
  3. DIGOXIN [Suspect]
     Indication: CARDIAC FAILURE CONGESTIVE
     Dosage: 0.125 MG; QD; PO
     Route: 048
     Dates: start: 20050524, end: 20080517
  4. DIGOXIN [Suspect]
     Dosage: 0.125 MG; QD; PO
     Route: 048
     Dates: start: 20081024
  5. TEQUIN [Concomitant]
  6. ALDACTONE [Concomitant]
  7. COZAAR [Concomitant]
  8. LASIX [Concomitant]
  9. TOPROL-XL [Concomitant]
  10. DIOVAN [Concomitant]
  11. K-DUR [Concomitant]
  12. PLAVIX [Concomitant]
  13. DARVOCET [Concomitant]
  14. LEVAQUIN [Concomitant]

REACTIONS (46)
  - ACUTE RESPIRATORY DISTRESS SYNDROME [None]
  - ANXIETY [None]
  - AORTIC STENOSIS [None]
  - AORTIC VALVE INCOMPETENCE [None]
  - ASTHMA [None]
  - ATRIOVENTRICULAR BLOCK FIRST DEGREE [None]
  - BRADYCARDIA [None]
  - BRAIN NATRIURETIC PEPTIDE INCREASED [None]
  - BUNDLE BRANCH BLOCK [None]
  - CARDIAC DISORDER [None]
  - CARDIAC FAILURE CONGESTIVE [None]
  - CARDIAC MURMUR [None]
  - CARDIAC VALVE DISEASE [None]
  - CARDIOMEGALY [None]
  - CARDIOMYOPATHY [None]
  - CHRONIC OBSTRUCTIVE PULMONARY DISEASE [None]
  - CORONARY ARTERY DISEASE [None]
  - COUGH [None]
  - DILATATION VENTRICULAR [None]
  - DIZZINESS [None]
  - ECONOMIC PROBLEM [None]
  - ELECTROCARDIOGRAM QRS COMPLEX PROLONGED [None]
  - EPIDIDYMITIS [None]
  - HAEMODYNAMIC INSTABILITY [None]
  - HERNIA [None]
  - HYPERTENSION [None]
  - LEFT ATRIAL DILATATION [None]
  - LEFT VENTRICULAR DYSFUNCTION [None]
  - LEFT VENTRICULAR HYPERTROPHY [None]
  - MITRAL VALVE INCOMPETENCE [None]
  - MULTIPLE INJURIES [None]
  - MYOCARDIAL ISCHAEMIA [None]
  - PAIN [None]
  - PRESYNCOPE [None]
  - PULMONARY CONGESTION [None]
  - PULMONARY HYPERTENSION [None]
  - PYREXIA [None]
  - RIGHT ATRIAL DILATATION [None]
  - SCROTAL SWELLING [None]
  - SINUS BRADYCARDIA [None]
  - SWELLING [None]
  - SYNCOPE [None]
  - TESTICULAR DISORDER [None]
  - TREATMENT NONCOMPLIANCE [None]
  - TRICUSPID VALVE INCOMPETENCE [None]
  - VENTRICULAR EXTRASYSTOLES [None]
